FAERS Safety Report 8512995-5 (Version None)
Quarter: 2012Q3

REPORT INFORMATION
  Report Type: 
  Country: None (occurrence: None)
  Receive Date: 20120716
  Receipt Date: 20120704
  Transmission Date: 20120928
  Serious: Yes (Hospitalization)
  Sender: FDA-Public Use
  Company Number: CH-009507513-1207CHE000758

PATIENT

DRUGS (5)
  1. CALCIMAGON D3 [Concomitant]
     Dosage: UNK
  2. REMERON [Suspect]
     Dosage: 15 MG, QD
     Route: 048
     Dates: start: 20120201, end: 20120418
  3. TORSEMIDE [Suspect]
     Indication: DIURETIC THERAPY
     Dosage: 5 MG, QD
     Route: 048
     Dates: end: 20120418
  4. PANTOPRAZOLE [Concomitant]
     Dosage: UNK
  5. ASPIRIN [Concomitant]
     Dosage: UNK

REACTIONS (2)
  - HYPONATRAEMIA [None]
  - INAPPROPRIATE ANTIDIURETIC HORMONE SECRETION [None]
